FAERS Safety Report 11004270 (Version 3)
Quarter: 2015Q3

REPORT INFORMATION
  Report Type: Spontaneous
  Country: FR (occurrence: None)
  Receive Date: 20150407
  Receipt Date: 20150814
  Transmission Date: 20151125
  Serious: Yes (Life-Threatening, Hospitalization)
  Sender: FDA-Public Use
  Company Number: FR-000032

PATIENT
  Age: 6 Year
  Sex: Female

DRUGS (2)
  1. MERCAPTOPURINE (MERCAPTOPURINE) [Suspect]
     Active Substance: MERCAPTOPURINE
     Indication: ACUTE LYMPHOCYTIC LEUKAEMIA
     Dosage: 200 MG/DAY (PRESCRIBED DOSE 40 MG/DAY)
     Route: 048
     Dates: start: 20150304, end: 20150310
  2. BACTRIM [Concomitant]
     Active Substance: SULFAMETHOXAZOLE\TRIMETHOPRIM

REACTIONS (17)
  - Respiratory distress [None]
  - Cholestasis [None]
  - Vomiting [None]
  - Bone marrow failure [None]
  - Mucosal inflammation [None]
  - Coagulopathy [None]
  - Hepatocellular injury [None]
  - Aplastic anaemia [None]
  - Accidental overdose [None]
  - Drug administration error [None]
  - Vitamin K deficiency [None]
  - Abdominal pain [None]
  - Hepatic function abnormal [None]
  - Pneumonia [None]
  - Febrile neutropenia [None]
  - Drug dispensing error [None]
  - Diarrhoea [None]

NARRATIVE: CASE EVENT DATE: 201503
